FAERS Safety Report 7823081-1 (Version None)
Quarter: 2011Q4

REPORT INFORMATION
  Report Type: 
  Country: None (occurrence: None)
  Receive Date: 20111018
  Receipt Date: 20110106
  Transmission Date: 20120403
  Serious: No
  Sender: FDA-Public Use
  Company Number: US-ASTRAZENECA-2011SE01328

PATIENT
  Age: 71 Year
  Sex: Female

DRUGS (2)
  1. NEXIUM [Concomitant]
  2. SYMBICORT [Suspect]
     Dosage: 160/4.5MCG 1 PUFF BID
     Route: 055

REACTIONS (2)
  - DYSPNOEA [None]
  - VOCAL CORD DISORDER [None]
